FAERS Safety Report 8432225-2 (Version None)
Quarter: 2012Q2

REPORT INFORMATION
  Report Type: 
  Country: None (occurrence: None)
  Receive Date: 20120607
  Receipt Date: 20120523
  Transmission Date: 20120825
  Serious: Yes (Life-Threatening, Hospitalization)
  Sender: FDA-Public Use
  Company Number: FK201201532

PATIENT
  Age: 32 Year
  Sex: Female

DRUGS (2)
  1. ATRACURIUM BESYLATE [Suspect]
     Indication: GENERAL ANAESTHESIA
     Dosage: INTRAVENOUS (NOT OTHERWISE SPECIFIED)
     Route: 042
     Dates: start: 20120430, end: 20120430
  2. PROPOFOL [Suspect]
     Indication: INDUCTION OF ANAESTHESIA
     Dosage: INTRAVENOUS (NOT OTHERWISE SPECIFIED)
     Route: 042
     Dates: start: 20120430, end: 20120430

REACTIONS (1)
  - ANAPHYLACTIC SHOCK [None]
